FAERS Safety Report 6910687-7 (Version None)
Quarter: 2010Q3

REPORT INFORMATION
  Report Type: 
  Country: None (occurrence: None)
  Receive Date: 20100806
  Receipt Date: 20100727
  Transmission Date: 20110219
  Serious: Yes (Death, Hospitalization)
  Sender: FDA-Public Use
  Company Number: NL-ROCHE-718321

PATIENT
  Sex: Male

DRUGS (3)
  1. XELODA [Suspect]
     Dosage: FREQUENCY: Q.D
     Route: 048
     Dates: start: 20100716
  2. AVASTIN [Suspect]
     Route: 042
     Dates: start: 20100716
  3. OXALIPLATIN [Concomitant]
     Route: 042
     Dates: start: 20100716

REACTIONS (2)
  - DEATH [None]
  - VENTRICULAR FIBRILLATION [None]
